FAERS Safety Report 8420273-8 (Version None)
Quarter: 2012Q2

REPORT INFORMATION
  Report Type: 
  Country: None (occurrence: None)
  Receive Date: 20120607
  Receipt Date: 20120523
  Transmission Date: 20120825
  Serious: Yes (Hospitalization)
  Sender: FDA-Public Use
  Company Number: CHPA2012US011452

PATIENT
  Age: 25 Year
  Sex: Female

DRUGS (4)
  1. NICOTINE [Suspect]
     Dosage: UNK, UNK
     Route: 062
  2. NICOTINE [Suspect]
     Indication: SMOKING CESSATION THERAPY
     Dosage: 14 MG, QD
     Route: 062
     Dates: start: 20120523
  3. DRUG THERAPY NOS [Concomitant]
     Indication: NAUSEA
     Dosage: UNK, UNK
  4. DRUG THERAPY NOS [Concomitant]
     Indication: PAIN
     Dosage: UNK, UNK

REACTIONS (2)
  - PANCREATITIS [None]
  - UNDERDOSE [None]
